FAERS Safety Report 5083734-8 (Version None)
Quarter: 2006Q3

REPORT INFORMATION
  Report Type: 
  Country: None (occurrence: None)
  Receive Date: 20060818
  Receipt Date: 20060809
  Transmission Date: 20061208
  Serious: Yes (Hospitalization)
  Sender: FDA-Public Use
  Company Number: FR-ROCHE-458912

PATIENT
  Age: 30 Year
  Sex: Female

DRUGS (5)
  1. VALIUM [Suspect]
     Indication: DRUG USE FOR UNKNOWN INDICATION
     Route: 048
     Dates: start: 20060523
  2. XANAX [Concomitant]
     Route: 048
     Dates: start: 20060525, end: 20060526
  3. FLUOXETINE [Concomitant]
     Dosage: DOSE REPORTED AS '1 DOSE DAILY'
     Route: 048
     Dates: start: 20060523
  4. THERALENE [Concomitant]
     Dosage: NO DETAILS PROVIDED
     Route: 048
     Dates: start: 20060523, end: 20060526
  5. TERCIAN [Concomitant]
     Dosage: NO DETAILS PROVIDED
     Route: 048
     Dates: start: 20060526

REACTIONS (6)
  - ALCOHOL WITHDRAWAL SYNDROME [None]
  - BLOOD PRESSURE DIASTOLIC DECREASED [None]
  - DRUG TOXICITY [None]
  - OVERDOSE [None]
  - PROSTRATION [None]
  - SOMNOLENCE [None]
